FAERS Safety Report 17065975 (Version 4)
Quarter: 2020Q3

REPORT INFORMATION
  Report Type: Report from Study
  Country: US (occurrence: US)
  Receive Date: 20191122
  Receipt Date: 20200317
  Transmission Date: 20201104
  Serious: Yes (Hospitalization)
  Sender: FDA-Public Use
  Company Number: US-PFIZER INC-2019489909

PATIENT
  Age: 36 Year
  Sex: Female
  Weight: 92 kg

DRUGS (24)
  1. COLCRYS [Concomitant]
     Active Substance: COLCHICINE
     Dosage: 0.6 MG
  2. PROTONIX [OMEPRAZOLE] [Concomitant]
     Active Substance: OMEPRAZOLE
     Dosage: 40 MG
  3. GUAIFENESIN (ROBITUSSIN) [Concomitant]
     Dosage: 100 MG/5 ML
  4. ELIQUIS [Concomitant]
     Active Substance: APIXABAN
     Dosage: 5 MG
  5. ZOFRAN [Concomitant]
     Active Substance: ONDANSETRON HYDROCHLORIDE
     Indication: NAUSEA
     Dosage: 8 MG, UNK
     Route: 048
     Dates: start: 20190923
  6. TOPROL XL [Concomitant]
     Active Substance: METOPROLOL SUCCINATE
     Indication: SUPRAVENTRICULAR TACHYCARDIA
     Dosage: 25 MG, BID, 24 HR TABLET
     Route: 048
     Dates: start: 20191106
  7. DURAGESIC [Concomitant]
     Active Substance: FENTANYL
     Dosage: 75 MCG/HR
     Route: 061
     Dates: start: 20191106
  8. MAGIC MOUTHWASH?BLM [Concomitant]
     Dosage: 200?25?400?40 MG/30 ML SUSPENSION
  9. GUAR GUM [Concomitant]
     Active Substance: GUAR GUM
  10. ATIVAN [Concomitant]
     Active Substance: LORAZEPAM
     Dosage: 0.5 MG
  11. SENNA (SENOKOT) [Concomitant]
     Dosage: 8.6 MG, UNK
  12. LOMOTIL [Concomitant]
     Active Substance: ATROPINE SULFATE\DIPHENOXYLATE HYDROCHLORIDE
     Dosage: [DIPHENOXYLATE HYDROCHLORIDE 2.5 MG]/[ATROPINE SULFATE 0.025 MG] PET TABLET
  13. SACITUZUMAB GOVITECAN. [Suspect]
     Active Substance: SACITUZUMAB GOVITECAN
     Indication: BREAST CANCER METASTATIC
     Dosage: 8 MG/KG, D1+8 Q21D
     Route: 042
     Dates: start: 20191104, end: 20191204
  14. DURAGESIC [Concomitant]
     Active Substance: FENTANYL
     Dosage: 12 MCG/HR
     Route: 061
     Dates: start: 20191106
  15. NEUPOGEN [Concomitant]
     Active Substance: FILGRASTIM
     Dosage: 480 MCG, SUBCUTANEOUS INJECTION SYRINGE
     Route: 058
  16. TALAZOPARIB. [Suspect]
     Active Substance: TALAZOPARIB
     Indication: BREAST CANCER METASTATIC
     Dosage: 0.5 MG, QD
     Route: 048
     Dates: start: 20191104, end: 20191108
  17. DILAUDID [Concomitant]
     Active Substance: HYDROMORPHONE HYDROCHLORIDE
     Dosage: 2 MG
     Route: 048
     Dates: start: 20191106
  18. ATIVAN [Concomitant]
     Active Substance: LORAZEPAM
     Dosage: 1 MG
  19. ZYPREXA ZYDIS [Concomitant]
     Active Substance: OLANZAPINE
     Dosage: 5 MG, DISINTEGRATING TABLET
  20. TYLENOL [Concomitant]
     Active Substance: ACETAMINOPHEN
     Dosage: 325 MG, UNK
  21. CELEXA [CELECOXIB] [Concomitant]
     Active Substance: CELECOXIB
     Dosage: 20 MG
  22. COLACE [Concomitant]
     Active Substance: DOCUSATE SODIUM
     Dosage: 100 MG, UNK
  23. TESSALON [Concomitant]
     Active Substance: BENZONATATE
     Dosage: 100 MG, UNK
  24. PERIDEX [CHLORHEXIDINE GLUCONATE] [Concomitant]

REACTIONS (5)
  - Pancytopenia [Recovered/Resolved]
  - Supraventricular tachycardia [Recovered/Resolved]
  - Febrile neutropenia [Recovered/Resolved]
  - Condition aggravated [Recovered/Resolved]
  - Neutropenia [Recovered/Resolved]

NARRATIVE: CASE EVENT DATE: 20191109
